FAERS Safety Report 4726404-5 (Version None)
Quarter: 2005Q3

REPORT INFORMATION
  Report Type: 
  Country: None (occurrence: None)
  Receive Date: 20050726
  Receipt Date: 20050420
  Transmission Date: 20060218
  Serious: No
  Sender: FDA-Public Use
  Company Number: REM_00106_2005

PATIENT
  Age: 60 Year
  Sex: Female
  Weight: 71.7 kg

DRUGS (15)
  1. REMODULIN [Suspect]
     Indication: PULMONARY HYPERTENSION
     Dosage: 10 NG/KG/MIN CONTINUOUS IV
     Route: 042
     Dates: start: 20050225
  2. TRACLEER [Concomitant]
  3. FUROSEMIDE [Concomitant]
  4. WARFARIN [Concomitant]
  5. SPIRONOLACTONE [Concomitant]
  6. LOPRESSOR [Concomitant]
  7. ISOSORBIDE [Concomitant]
  8. LOVASTATIN [Concomitant]
  9. LANTUS [Concomitant]
  10. AMARYL [Concomitant]
  11. SYNTHROID [Concomitant]
  12. ASPIRIN [Concomitant]
  13. PROVENTIL [Concomitant]
  14. TEMAZEPAM [Concomitant]
  15. FOLIC ACID [Concomitant]

REACTIONS (3)
  - ANOREXIA [None]
  - FATIGUE [None]
  - INCREASED UPPER AIRWAY SECRETION [None]
